FAERS Safety Report 4812660-1 (Version None)
Quarter: 2005Q4

REPORT INFORMATION
  Report Type: 
  Country: None (occurrence: None)
  Receive Date: 20051028
  Receipt Date: 20041104
  Transmission Date: 20060501
  Serious: No
  Sender: FDA-Public Use
  Company Number: US-GLAXOSMITHKLINE-A0532726A

PATIENT
  Age: 61 Year
  Sex: Male

DRUGS (9)
  1. ADVAIR DISKUS 100/50 [Suspect]
     Indication: DRUG USE FOR UNKNOWN INDICATION
     Dosage: 2PUFF PER DAY
     Route: 055
  2. ZOCOR [Concomitant]
  3. ATENOLOL [Concomitant]
  4. HYTRIN [Concomitant]
  5. PLAVIX [Concomitant]
  6. NEXIUM [Concomitant]
  7. LIBRAX [Concomitant]
  8. AVALIDE [Concomitant]
  9. AVODART [Concomitant]

REACTIONS (1)
  - COUGH [None]
